FAERS Safety Report 5679181-8 (Version None)
Quarter: 2008Q1

REPORT INFORMATION
  Report Type: 
  Country: None (occurrence: None)
  Receive Date: 20080321
  Receipt Date: 20080305
  Transmission Date: 20080703
  Serious: No
  Sender: FDA-Public Use
  Company Number: SPI200800088

PATIENT
  Age: 64 Year
  Sex: Female
  Weight: 58 kg

DRUGS (8)
  1. AMITIZA [Suspect]
     Indication: CONSTIPATION
     Dosage: 24 MCG, BID, ORAL
     Route: 048
     Dates: start: 20070610, end: 20080229
  2. ULTRACET [Concomitant]
  3. NORVASC /00972401/ (AMLODIPINE) [Concomitant]
  4. HYDROCHLOROTHIAZIDE [Concomitant]
  5. SPIRONOLACTONE [Concomitant]
  6. PROTONIX /01263201/ (PANTOPRAZOLE) [Concomitant]
  7. DETROL /01350201/ (TOLTERODINE) [Concomitant]
  8. MIRALAX [Concomitant]

REACTIONS (6)
  - ABDOMINAL DISTENSION [None]
  - BACK DISORDER [None]
  - DRUG INEFFECTIVE [None]
  - HAEMORRHOIDS [None]
  - HYPOAESTHESIA [None]
  - OEDEMA PERIPHERAL [None]
